FAERS Safety Report 9163649 (Version 1)
Quarter: 2013Q1

REPORT INFORMATION
  Report Type: Other
  Country: GR (occurrence: GR)
  Receive Date: 20130314
  Receipt Date: 20130314
  Transmission Date: 20140127
  Serious: Yes (Death)
  Sender: FDA-Public Use
  Company Number: GR-BRISTOL-MYERS SQUIBB COMPANY-17442690

PATIENT
  Age: 72 Year
  Sex: Female

DRUGS (5)
  1. IRBESARTAN [Suspect]
  2. BUSPIRONE [Interacting]
  3. LITHIUM [Interacting]
  4. AMLODIPINE [Interacting]
  5. ESCITALOPRAM [Interacting]

REACTIONS (2)
  - Neuroleptic malignant syndrome [Fatal]
  - Drug interaction [Fatal]
